FAERS Safety Report 21408312 (Version 3)
Quarter: 2022Q4

REPORT INFORMATION
  Report Type: Report from Study
  Country: US (occurrence: US)
  Receive Date: 20221004
  Receipt Date: 20221122
  Transmission Date: 20230113
  Serious: No
  Sender: FDA-Public Use
  Company Number: US-NOVARTISTESTPH-NVSC2022US224022

PATIENT
  Age: 47 Year
  Sex: Male
  Weight: 106.59 kg

DRUGS (4)
  1. COSENTYX [Suspect]
     Active Substance: SECUKINUMAB
     Indication: Psoriasis
     Dosage: 300 MG, QMO
     Route: 058
     Dates: start: 20220715
  2. COSENTYX [Suspect]
     Active Substance: SECUKINUMAB
     Dosage: 300 MG, QMO
     Route: 058
  3. COSENTYX [Suspect]
     Active Substance: SECUKINUMAB
     Dosage: 300 MG, QMO
     Route: 058
  4. COSENTYX [Suspect]
     Active Substance: SECUKINUMAB
     Dosage: UNK
     Route: 065
     Dates: start: 202207

REACTIONS (8)
  - Allergic sinusitis [Not Recovered/Not Resolved]
  - Cough [Not Recovered/Not Resolved]
  - Sputum discoloured [Unknown]
  - Rash macular [Unknown]
  - Sinusitis [Not Recovered/Not Resolved]
  - Upper respiratory tract infection [Unknown]
  - Condition aggravated [Not Recovered/Not Resolved]
  - Musculoskeletal chest pain [Unknown]

NARRATIVE: CASE EVENT DATE: 20220701
